FAERS Safety Report 9519949 (Version 1)
Quarter: 2013Q3

REPORT INFORMATION
  Report Type: Spontaneous
  Country: US (occurrence: US)
  Receive Date: 20130912
  Receipt Date: 20130912
  Transmission Date: 20140515
  Serious: Yes (Hospitalization)
  Sender: FDA-Public Use
  Company Number: US-BAYER-2013-109994

PATIENT
  Age: 37 Year
  Sex: Female
  Weight: 134.69 kg

DRUGS (8)
  1. YAZ [Suspect]
  2. AMLODIPINE [Concomitant]
  3. SIMVASTATIN [Concomitant]
  4. ASA [Concomitant]
  5. VASOTEC [Concomitant]
  6. ZOCOR [Concomitant]
  7. ZETIA [Concomitant]
  8. ECOTRIN [Concomitant]

REACTIONS (1)
  - Myocardial infarction [None]
